FAERS Safety Report 9515482 (Version 2)
Quarter: 2013Q4

REPORT INFORMATION
  Report Type: Report from Study
  Country: NL (occurrence: NL)
  Receive Date: 20130911
  Receipt Date: 20131129
  Transmission Date: 20140711
  Serious: No
  Sender: FDA-Public Use
  Company Number: PHHY2013NL099714

PATIENT
  Age: 37 Year
  Sex: Male

DRUGS (4)
  1. ACLASTA [Suspect]
     Indication: OSTEOPOROSIS
     Dosage: 5 MG PER 52 WEEKS
     Route: 042
     Dates: start: 20110905
  2. ACLASTA [Suspect]
     Dosage: 5 MG,PER 52 WEEKS
     Route: 042
     Dates: start: 20120904
  3. ACLASTA [Suspect]
     Dosage: 5 MG,PER 52 WEEKS
     Route: 042
     Dates: start: 20130909
  4. CALCIUM + VITAMIN D                /01483701/ [Concomitant]
     Dosage: 1 DF, QD

REACTIONS (2)
  - Rib fracture [Recovered/Resolved]
  - Musculoskeletal chest pain [Recovered/Resolved]
